FAERS Safety Report 6137499-9 (Version None)
Quarter: 2009Q1

REPORT INFORMATION
  Report Type: 
  Country: None (occurrence: None)
  Receive Date: 20090326
  Receipt Date: 20090312
  Transmission Date: 20090719
  Serious: Yes (Hospitalization)
  Sender: FDA-Public Use
  Company Number: 2008BM000225

PATIENT
  Age: 15 Year
  Sex: Female
  Weight: 17 kg

DRUGS (4)
  1. NAGLAZYME [Suspect]
     Indication: MUCOPOLYSACCHARIDOSIS VI
     Dosage: 20 MG; QW; IVDRP
     Route: 041
     Dates: start: 20071114
  2. HYDROXYZINE [Concomitant]
  3. DIPYRONE [Concomitant]
  4. AMOXICILLIN [Concomitant]

REACTIONS (3)
  - HYPOTENSION [None]
  - INFUSION RELATED REACTION [None]
  - PNEUMONIA [None]
